FAERS Safety Report 21993271 (Version 1)
Quarter: 2023Q1

REPORT INFORMATION
  Report Type: Spontaneous
  Country: US (occurrence: US)
  Receive Date: 20230215
  Receipt Date: 20230215
  Transmission Date: 20230418
  Serious: No
  Sender: FDA-Public Use
  Company Number: US-JNJFOC-20230152329

PATIENT

DRUGS (1)
  1. DARZALEX FASPRO [Suspect]
     Active Substance: DARATUMUMAB\HYALURONIDASE-FIHJ
     Indication: Product used for unknown indication
     Dosage: 1 UNITS INVOLVED.?DARZALEX FASPRO VIAL 1800.00 MG/ 15.00 ML
     Route: 065

REACTIONS (2)
  - Product preparation error [Unknown]
  - Product dose omission issue [Unknown]
